FAERS Safety Report 8513371-1 (Version None)
Quarter: 2012Q3

REPORT INFORMATION
  Report Type: 
  Country: None (occurrence: None)
  Receive Date: 20120716
  Receipt Date: 20120712
  Transmission Date: 20120928
  Serious: Yes (Other)
  Sender: FDA-Public Use
  Company Number: US-AMGEN-USASP2011004242

PATIENT
  Age: 77 Year
  Sex: Male

DRUGS (3)
  1. TREXALL [Concomitant]
     Dosage: UNK
     Dates: start: 20090101
  2. ENBREL [Suspect]
     Indication: PSORIATIC ARTHROPATHY
     Dosage: 50 MG, QWK
     Dates: start: 20101201, end: 20110107
  3. ENBREL [Suspect]
     Dosage: 50 MG, QWK
     Dates: start: 20110211

REACTIONS (4)
  - UPPER EXTREMITY MASS [None]
  - LOCALISED INFECTION [None]
  - DIABETES MELLITUS [None]
  - DRUG INEFFECTIVE [None]
